FAERS Safety Report 15966452 (Version 3)
Quarter: 2019Q1

REPORT INFORMATION
  Report Type: Report from Study
  Country: BR (occurrence: BR)
  Receive Date: 20190215
  Receipt Date: 20190315
  Transmission Date: 20190418
  Serious: Yes (Hospitalization, Other)
  Sender: FDA-Public Use
  Company Number: PHHY2019BR032866

PATIENT
  Age: 69 Year
  Sex: Male
  Weight: 90 kg

DRUGS (1)
  1. COSENTYX [Suspect]
     Active Substance: SECUKINUMAB
     Indication: ANKYLOSING SPONDYLITIS
     Dosage: 300 MG, QMO
     Route: 058
     Dates: start: 201810

REACTIONS (8)
  - Bacterial infection [Unknown]
  - Spinal fracture [Unknown]
  - Osteoporosis [Not Recovered/Not Resolved]
  - Paraplegia [Recovering/Resolving]
  - Spinal cord disorder [Recovering/Resolving]
  - Peripheral swelling [Unknown]
  - Mobility decreased [Not Recovered/Not Resolved]
  - Weight decreased [Unknown]

NARRATIVE: CASE EVENT DATE: 201810
